FAERS Safety Report 5453220-1 (Version None)
Quarter: 2007Q3

REPORT INFORMATION
  Report Type: 
  Country: None (occurrence: None)
  Receive Date: 20070914
  Receipt Date: 20070904
  Transmission Date: 20080115
  Serious: Yes (Other)
  Sender: FDA-Public Use
  Company Number: US-PFIZER INC-2007074670

PATIENT
  Sex: Female
  Weight: 59.09 kg

DRUGS (7)
  1. LYRICA [Suspect]
     Indication: FIBROMYALGIA
     Dosage: TEXT:QD EVERY DAY
     Route: 048
  2. XANAX [Concomitant]
  3. WELLBUTRIN [Concomitant]
  4. FIORINAL [Concomitant]
  5. ACTONEL [Concomitant]
  6. BENICAR [Concomitant]
  7. ZETIA [Concomitant]

REACTIONS (6)
  - ANXIETY [None]
  - CONSTIPATION [None]
  - DRUG INEFFECTIVE [None]
  - FLATULENCE [None]
  - ORAL INTAKE REDUCED [None]
  - WEIGHT DECREASED [None]
